FAERS Safety Report 25163125 (Version 1)
Quarter: 2025Q2

REPORT INFORMATION
  Report Type: Spontaneous
  Country: IN (occurrence: IN)
  Receive Date: 20250404
  Receipt Date: 20250404
  Transmission Date: 20250717
  Serious: Yes (Hospitalization)
  Sender: MEDEXUS PHARMA
  Company Number: IN-MEDEXUS PHARMA, INC.-2025MED00087

PATIENT
  Age: 56 Year
  Sex: Female

DRUGS (2)
  1. METHOTREXATE [Suspect]
     Active Substance: METHOTREXATE
     Indication: Psoriasis
     Dosage: 30 MG, 1X/WEEK
  2. UNSPECIFIED INGREDIENT [Suspect]
     Active Substance: UNSPECIFIED INGREDIENT

REACTIONS (8)
  - Odynophagia [Recovered/Resolved]
  - Mucosal inflammation [Recovered/Resolved]
  - Epistaxis [Recovered/Resolved]
  - Ulcer [Recovered/Resolved]
  - Pancytopenia [Recovered/Resolved]
  - Hypertransaminasaemia [Recovered/Resolved]
  - Drug interaction [Recovered/Resolved]
  - Toxicity to various agents [Recovered/Resolved]
